FAERS Safety Report 12688165 (Version 1)
Quarter: 2016Q3

REPORT INFORMATION
  Report Type: Spontaneous
  Country: US (occurrence: None)
  Receive Date: 20160825
  Receipt Date: 20160825
  Transmission Date: 20161109
  Serious: No
  Sender: FDA-Public Use
  Company Number: None

PATIENT

DRUGS (2)
  1. CIPROFLOXACIN CIPROFLOXACIN [Suspect]
     Active Substance: CIPROFLOXACIN
     Dosage: SOLUTION OPHTHALMIC
     Route: 047
  2. OFLOXACIN OFLOXACIN [Suspect]
     Active Substance: OFLOXACIN
     Dosage: SOLUTION OPHTHALMIC

REACTIONS (1)
  - Product name confusion [None]
